FAERS Safety Report 10243742 (Version 1)
Quarter: 2014Q2

REPORT INFORMATION
  Report Type: Spontaneous
  Country: FR (occurrence: FR)
  Receive Date: 20140618
  Receipt Date: 20140618
  Transmission Date: 20141212
  Serious: Yes (Other)
  Sender: FDA-Public Use
  Company Number: FR-TEVA-488587ISR

PATIENT
  Age: 54 Year
  Sex: Female

DRUGS (10)
  1. ETOPOSIDE [Suspect]
     Indication: METASTASES TO LIVER
     Route: 048
  2. PACLITAXEL [Suspect]
     Route: 065
  3. TRASTUZUMAB [Suspect]
     Route: 065
  4. VINORELBINE [Suspect]
     Route: 065
  5. CAPECITABINE [Suspect]
     Route: 065
  6. GEMCITABINE [Suspect]
     Route: 065
  7. EPIRUBICIN [Suspect]
     Route: 065
  8. MELPHALAN [Suspect]
     Indication: METASTASES TO LIVER
     Route: 065
  9. AFLIBERCEPT [Suspect]
     Dosage: 2 MG/KG EVERY 21 DAYS
     Route: 065
     Dates: start: 200512
  10. DOCETAXEL [Suspect]
     Dosage: 75 MG/M2 EVERY 21 DAYS
     Route: 065
     Dates: start: 200512

REACTIONS (2)
  - Epistaxis [Unknown]
  - Thrombosis [Unknown]
